FAERS Safety Report 21507489 (Version 1)
Quarter: 2022Q4

REPORT INFORMATION
  Report Type: Spontaneous
  Country: US (occurrence: None)
  Receive Date: 20221025
  Receipt Date: 20221025
  Transmission Date: 20230113
  Serious: Yes (Hospitalization)
  Sender: FDA-Public Use
  Company Number: None

PATIENT
  Sex: Female

DRUGS (2)
  1. REBIF REBIDOSE [Suspect]
     Active Substance: INTERFERON BETA-1A
     Indication: Multiple sclerosis
     Dosage: OTHER QUANTITY : 44MCG/0.5ML;?FREQUENCY : 3 TIMES A WEEK;?
     Route: 058
     Dates: start: 20150715
  2. NAPROSYN TAB [Concomitant]

REACTIONS (2)
  - Multiple sclerosis relapse [None]
  - Hypertension [None]
